FAERS Safety Report 12603173 (Version 1)
Quarter: 2016Q3

REPORT INFORMATION
  Report Type: Spontaneous
  Country: US (occurrence: US)
  Receive Date: 20160728
  Receipt Date: 20160728
  Transmission Date: 20161109
  Serious: No
  Sender: FDA-Public Use
  Company Number: US-ENDO PHARMACEUTICALS INC-2016SCPR015420

PATIENT

DRUGS (1)
  1. MEGACE ES [Suspect]
     Active Substance: MEGESTROL ACETATE
     Indication: DECREASED APPETITE
     Dosage: 400 ML
     Route: 065

REACTIONS (2)
  - Protein total decreased [Unknown]
  - Overdose [Unknown]

NARRATIVE: CASE EVENT DATE: 2015
